FAERS Safety Report 8015750-8 (Version None)
Quarter: 2011Q4

REPORT INFORMATION
  Report Type: 
  Country: None (occurrence: None)
  Receive Date: 20111230
  Receipt Date: 20111227
  Transmission Date: 20120403
  Serious: Yes (Other)
  Sender: FDA-Public Use
  Company Number: PHEH2011US012613

PATIENT
  Sex: Male

DRUGS (3)
  1. PREDNISONE TAB [Concomitant]
  2. EXJADE [Suspect]
     Dosage: UNK UKN, UNK
     Route: 048
  3. EXJADE [Suspect]
     Dosage: 375 MG, QD
     Route: 048

REACTIONS (3)
  - CYSTITIS [None]
  - DYSURIA [None]
  - DIARRHOEA [None]
